FAERS Safety Report 7914476-6 (Version None)
Quarter: 2011Q4

REPORT INFORMATION
  Report Type: 
  Country: None (occurrence: None)
  Receive Date: 20111115
  Receipt Date: 20111104
  Transmission Date: 20120403
  Serious: Yes (Other)
  Sender: FDA-Public Use
  Company Number: FR-JNJFOC-20111103015

PATIENT
  Age: 53 Year
  Sex: Male

DRUGS (1)
  1. REMICADE [Suspect]
     Indication: CROHN'S DISEASE
     Dosage: 7TH INFUSION
     Route: 042

REACTIONS (5)
  - MALAISE [None]
  - ANGIOEDEMA [None]
  - HYPERTENSION [None]
  - INFUSION RELATED REACTION [None]
  - HOT FLUSH [None]
